FAERS Safety Report 21719790 (Version 1)
Quarter: 2022Q4

REPORT INFORMATION
  Report Type: Spontaneous
  Country: US (occurrence: US)
  Receive Date: 20221213
  Receipt Date: 20221213
  Transmission Date: 20230112
  Serious: Yes (Other)
  Sender: FDA-Public Use
  Company Number: US-APOTEX-2022AP016502

PATIENT

DRUGS (4)
  1. SOTALOL [Suspect]
     Active Substance: SOTALOL
     Indication: Product used for unknown indication
     Dosage: UNK
     Route: 065
  2. QUINIDINE [Suspect]
     Active Substance: QUINIDINE
     Indication: Salvage therapy
     Dosage: UNK
     Route: 065
  3. QUINIDINE [Suspect]
     Active Substance: QUINIDINE
     Indication: Ventricular tachycardia
  4. AMIODARONE [Concomitant]
     Active Substance: AMIODARONE
     Indication: Product used for unknown indication
     Dosage: UNK
     Route: 065

REACTIONS (1)
  - Electrocardiogram QT prolonged [Unknown]
